FAERS Safety Report 24590830 (Version 2)
Quarter: 2024Q4

REPORT INFORMATION
  Report Type: Report from Study
  Country: US (occurrence: US)
  Receive Date: 20241107
  Receipt Date: 20241217
  Transmission Date: 20250114
  Serious: Yes (Hospitalization, Other)
  Sender: UCB
  Company Number: US-UCBSA-2024056746

PATIENT
  Age: 71 Year
  Sex: Male
  Weight: 61.6 kg

DRUGS (1)
  1. LACOSAMIDE [Suspect]
     Active Substance: LACOSAMIDE
     Indication: Seizure
     Dosage: 200 MILLIGRAM, 2X/DAY (BID)
     Route: 048
     Dates: start: 2016

REACTIONS (4)
  - Atrial fibrillation [Recovering/Resolving]
  - Pericardial effusion [Unknown]
  - Hypoxia [Unknown]
  - Abdominal pain [Unknown]

NARRATIVE: CASE EVENT DATE: 20240601
